FAERS Safety Report 16482244 (Version 1)
Quarter: 2019Q2

REPORT INFORMATION
  Report Type: Spontaneous
  Country: CZ (occurrence: CZ)
  Receive Date: 20190627
  Receipt Date: 20190627
  Transmission Date: 20190711
  Serious: Yes (Hospitalization)
  Sender: FDA-Public Use
  Company Number: CZ-B.I. PHARMACEUTICALS,INC./RIDGEFIELD-2019-BI-027361

PATIENT
  Age: 76 Year
  Sex: Male

DRUGS (1)
  1. PRADAXA [Suspect]
     Active Substance: DABIGATRAN ETEXILATE MESYLATE
     Indication: ATRIAL FIBRILLATION
     Route: 048

REACTIONS (6)
  - Head injury [Unknown]
  - Eye injury [Unknown]
  - Haemorrhage [Unknown]
  - Face injury [Unknown]
  - Fall [Unknown]
  - Tongue injury [Unknown]

NARRATIVE: CASE EVENT DATE: 20190430
